FAERS Safety Report 18659913 (Version 1)
Quarter: 2020Q4

REPORT INFORMATION
  Report Type: Spontaneous
  Country: CN (occurrence: CN)
  Receive Date: 20201224
  Receipt Date: 20201224
  Transmission Date: 20210114
  Serious: Yes (Hospitalization)
  Sender: FDA-Public Use
  Company Number: CN-PFIZER INC-2020500822

PATIENT
  Age: 40 Year
  Sex: Female
  Weight: 62 kg

DRUGS (1)
  1. TAZOCIN [Suspect]
     Active Substance: PIPERACILLIN SODIUM\TAZOBACTAM SODIUM
     Indication: SKIN ULCER
     Dosage: 4.5 G, 3X/DAY
     Route: 041
     Dates: start: 20201125, end: 20201209

REACTIONS (2)
  - C-reactive protein increased [Unknown]
  - Pyrexia [Recovering/Resolving]

NARRATIVE: CASE EVENT DATE: 20201207
